FAERS Safety Report 4739687-2 (Version None)
Quarter: 2005Q3

REPORT INFORMATION
  Report Type: 
  Country: None (occurrence: None)
  Receive Date: 20050810
  Receipt Date: 20050425
  Transmission Date: 20060218
  Serious: No
  Sender: FDA-Public Use
  Company Number: US-GLAXOSMITHKLINE-A0555694A

PATIENT
  Age: 31 Year
  Sex: Female
  Weight: 68.2 kg

DRUGS (4)
  1. PAXIL [Suspect]
     Indication: DEPRESSION
     Dosage: 20MG PER DAY
     Route: 048
     Dates: start: 20040901, end: 20050422
  2. COLESTID [Concomitant]
     Indication: IRRITABLE BOWEL SYNDROME
     Dosage: 1G PER DAY
     Route: 065
  3. PRILOSEC [Concomitant]
     Route: 065
  4. DONNATAL [Concomitant]
     Indication: IRRITABLE BOWEL SYNDROME
     Route: 065

REACTIONS (8)
  - DIZZINESS [None]
  - DRUG WITHDRAWAL SYNDROME [None]
  - FEELING ABNORMAL [None]
  - GAIT DISTURBANCE [None]
  - HEARING IMPAIRED [None]
  - PHOTOSENSITIVITY REACTION [None]
  - SENSORY DISTURBANCE [None]
  - VISUAL DISTURBANCE [None]
